FAERS Safety Report 8838417 (Version 2)
Quarter: 2013Q1

REPORT INFORMATION
  Report Type: Report from Study
  Country: CA (occurrence: CA)
  Receive Date: 20121012
  Receipt Date: 20121018
  Transmission Date: 20140127
  Serious: Yes (Hospitalization, Other)
  Sender: FDA-Public Use
  Company Number: CA-ASTRAZENECA-2012SE76953

PATIENT
  Age: 26109 Day
  Sex: Male

DRUGS (16)
  1. AZD6140 [Suspect]
     Indication: CORONARY ARTERY DISEASE
     Route: 048
     Dates: start: 20120622, end: 20120710
  2. AZD6140 [Suspect]
     Indication: CORONARY ARTERY DISEASE
     Route: 048
     Dates: start: 20120809, end: 20120929
  3. BRICANYL TURBUHALER [Concomitant]
     Indication: ASTHMA
     Route: 055
  4. ROSUVASTATINE [Concomitant]
     Indication: DYSLIPIDAEMIA
     Route: 048
  5. CALCIUM SUPPLEMENT [Concomitant]
     Indication: MINERAL SUPPLEMENTATION
     Route: 048
  6. VOLTAREN EMULGEL [Concomitant]
     Indication: BACK PAIN
     Route: 061
  7. NEXIUM [Concomitant]
     Indication: DYSPEPSIA
     Route: 048
     Dates: start: 20120629
  8. VITAMIN D [Concomitant]
     Indication: VITAMIN SUPPLEMENTATION
     Route: 048
  9. PULMICORT TURBUHALER [Concomitant]
     Indication: ASTHMA
     Route: 055
  10. CORTEF [Concomitant]
     Indication: HYPOPITUITARISM
     Route: 048
  11. DUTASTERIDE [Concomitant]
     Indication: BENIGN PROSTATIC HYPERPLASIA
     Route: 048
  12. MICARDIS PLUS [Concomitant]
     Indication: HYPERTENSION
     Route: 048
  13. DELATESTRYL [Concomitant]
     Indication: HYPOPITUITARISM
     Route: 030
  14. SYNTHROID [Concomitant]
     Indication: HYPOTHYROIDISM
     Route: 048
  15. DEPO TESTOSTERONE [Concomitant]
     Indication: HYPOPITUITARISM
     Route: 030
  16. ASA [Concomitant]
     Route: 048

REACTIONS (1)
  - Pancreatitis [Recovered/Resolved]
